FAERS Safety Report 16454918 (Version 1)
Quarter: 2019Q2

REPORT INFORMATION
  Report Type: Spontaneous
  Country: US (occurrence: US)
  Receive Date: 20190619
  Receipt Date: 20190619
  Transmission Date: 20190711
  Serious: No
  Sender: FDA-Public Use
  Company Number: US-ROCHE-2195424

PATIENT
  Sex: Female

DRUGS (6)
  1. ASPIRIN [ACETYLSALICYLIC ACID] [Concomitant]
     Active Substance: ASPIRIN
     Route: 065
  2. ACTEMRA [Suspect]
     Active Substance: TOCILIZUMAB
     Indication: TEMPORAL ARTERITIS
     Dosage: ONGOING:YES
     Route: 058
     Dates: start: 20180523
  3. ZETIA [Concomitant]
     Active Substance: EZETIMIBE
     Route: 065
  4. PROLIA [Concomitant]
     Active Substance: DENOSUMAB
     Route: 065
  5. TOPROL XL [Concomitant]
     Active Substance: METOPROLOL SUCCINATE
     Route: 065
  6. IBUPROFEN. [Concomitant]
     Active Substance: IBUPROFEN
     Route: 065

REACTIONS (2)
  - Skin discolouration [Unknown]
  - Erythema of eyelid [Unknown]
